FAERS Safety Report 13918665 (Version 2)
Quarter: 2017Q4

REPORT INFORMATION
  Report Type: Report from Study
  Country: None (occurrence: IL)
  Receive Date: 20170829
  Receipt Date: 20171017
  Transmission Date: 20180320
  Serious: Yes (Hospitalization)
  Sender: FDA-Public Use
  Company Number: IL-ABBVIE-17K-082-2080755-00

PATIENT
  Sex: Female

DRUGS (3)
  1. HUMIRA [Suspect]
     Active Substance: ADALIMUMAB
     Route: 058
  2. HUMIRA [Suspect]
     Active Substance: ADALIMUMAB
     Indication: CROHN^S DISEASE
     Route: 058
     Dates: start: 20130801
  3. HUMIRA [Suspect]
     Active Substance: ADALIMUMAB
     Indication: CROHN^S DISEASE
     Route: 058

REACTIONS (7)
  - Incorrect dose administered [Unknown]
  - Procedural pain [Unknown]
  - Hypersomnia [Unknown]
  - Injection site discolouration [Recovered/Resolved]
  - Injection site swelling [Unknown]
  - Injection site extravasation [Unknown]
  - Injection site pain [Recovered/Resolved]
